FAERS Safety Report 11214043 (Version 1)
Quarter: 2015Q2

REPORT INFORMATION
  Report Type: Spontaneous
  Country: BR (occurrence: BR)
  Receive Date: 20150623
  Receipt Date: 20150623
  Transmission Date: 20150821
  Serious: Yes (Hospitalization, Other)
  Sender: FDA-Public Use
  Company Number: BR-TAKEDA-2015TUS008027

PATIENT
  Age: 64 Year
  Sex: Male
  Weight: 72 kg

DRUGS (2)
  1. COCICHIMIL [Suspect]
     Active Substance: COLCHICINE
     Indication: GOUT
     Dosage: 2 TABLETS INITIALLY AND THEN 1 TABLET EVERY 4 HOURS
     Route: 048
     Dates: start: 20150612, end: 20150614
  2. ENALAPRIL [Concomitant]
     Active Substance: ENALAPRIL
     Indication: HYPERTENSION
     Dosage: UNK
     Route: 048

REACTIONS (3)
  - Hypersensitivity [None]
  - Hypoaesthesia [Recovered/Resolved]
  - Localised oedema [Recovered/Resolved]

NARRATIVE: CASE EVENT DATE: 20150614
